FAERS Safety Report 17164350 (Version 2)
Quarter: 2020Q1

REPORT INFORMATION
  Report Type: Spontaneous
  Country: IT (occurrence: IT)
  Receive Date: 20191217
  Receipt Date: 20200116
  Transmission Date: 20200409
  Serious: Yes (Death, Hospitalization)
  Sender: FDA-Public Use
  Company Number: IT-PFIZER INC-2019537516

PATIENT
  Age: 77 Year
  Sex: Female

DRUGS (4)
  1. 5-FU [FLUOROURACIL] [Suspect]
     Active Substance: FLUOROURACIL
     Indication: ADENOCARCINOMA
     Dosage: 400 MG/M2, CYCLIC (400 MG/MQ DAYS 1,2 [Q14])
     Dates: start: 2017
  2. 5-FU [FLUOROURACIL] [Suspect]
     Active Substance: FLUOROURACIL
     Dosage: 1200 MG/M2, CYCLIC (1200 MG/MQ IC 48 HOURS [Q14])
     Dates: start: 2017
  3. LEUCOVORIN [FOLINIC ACID] [Suspect]
     Active Substance: LEUCOVORIN
     Indication: ADENOCARCINOMA
     Dosage: 100 MG/M2, CYCLIC  (100 MG/MQ DAYS 1,2 [Q14]) WAS STARTED)
     Dates: start: 2017
  4. OXALIPLATIN. [Suspect]
     Active Substance: OXALIPLATIN
     Indication: ADENOCARCINOMA
     Dosage: 85 MG/M2, CYCLIC (85MG/MQ DAY 1 EVERY 14 DAYS [Q14])
     Dates: start: 2017

REACTIONS (2)
  - Diarrhoea [Unknown]
  - Gastrointestinal toxicity [Unknown]

NARRATIVE: CASE EVENT DATE: 201712
